FAERS Safety Report 8158435-X (Version None)
Quarter: 2012Q1

REPORT INFORMATION
  Report Type: 
  Country: None (occurrence: None)
  Receive Date: 20120223
  Receipt Date: 20120214
  Transmission Date: 20120608
  Serious: Yes (Other)
  Sender: FDA-Public Use
  Company Number: JP-JNJFOC-20120209314

PATIENT
  Age: 10 Decade

DRUGS (1)
  1. RISPERDAL [Suspect]
     Indication: BEHAVIOURAL AND PSYCHIATRIC SYMPTOMS OF DEMENTIA
     Route: 048
     Dates: end: 20120209

REACTIONS (2)
  - PARKINSONISM [None]
  - DELUSION [None]
